FAERS Safety Report 5075326-1 (Version None)
Quarter: 2006Q3

REPORT INFORMATION
  Report Type: 
  Country: None (occurrence: None)
  Receive Date: 20060807
  Receipt Date: 20060807
  Transmission Date: 20061208
  Serious: Yes (Other)
  Sender: FDA-Public Use
  Company Number: None

PATIENT
  Age: 37 Year
  Sex: Female
  Weight: 83.4619 kg

DRUGS (1)
  1. DILAUDID [Suspect]
     Indication: PAIN
     Dosage: 2MG IV Q4HOURS
     Route: 042

REACTIONS (2)
  - INFUSION RELATED REACTION [None]
  - PRURITUS [None]
